FAERS Safety Report 6170608-4 (Version None)
Quarter: 2009Q2

REPORT INFORMATION
  Report Type: 
  Country: None (occurrence: None)
  Receive Date: 20090428
  Receipt Date: 20090423
  Transmission Date: 20091009
  Serious: No
  Sender: FDA-Public Use
  Company Number: US-B.I. PHARMACEUTICALS,INC./RIDGEFIELD-2009-BP-02727BP

PATIENT
  Age: 53 Year
  Sex: Female

DRUGS (7)
  1. SPIRIVA [Suspect]
     Indication: BRONCHOSPASM
     Dosage: 18MCG
     Dates: start: 20081211, end: 20090303
  2. EFFEXOR XR [Concomitant]
  3. LISINOPRIL AND HYDROCHLOROTHIAZIDE [Concomitant]
     Route: 048
  4. TRAZODONE HCL [Concomitant]
     Dosage: 50MG
  5. ROBAXIN [Concomitant]
     Dosage: 2250MG
  6. TRAMADOL HCL [Concomitant]
     Dosage: 150MG
  7. ALBUTEROL [Concomitant]

REACTIONS (3)
  - CANDIDIASIS [None]
  - GLOSSODYNIA [None]
  - SWOLLEN TONGUE [None]
